FAERS Safety Report 15397660 (Version 1)
Quarter: 2018Q3

REPORT INFORMATION
  Report Type: Report from Study
  Country: ES (occurrence: ES)
  Receive Date: 20180918
  Receipt Date: 20180918
  Transmission Date: 20181010
  Serious: Yes (Hospitalization)
  Sender: FDA-Public Use
  Company Number: ES-PFIZER INC-2018373751

PATIENT
  Age: 41 Year
  Sex: Female
  Weight: 60.8 kg

DRUGS (4)
  1. FOLINIC ACID [Concomitant]
     Active Substance: LEUCOVORIN
     Indication: BREAST CANCER
     Dosage: 400 MG/M2, UNK
     Route: 042
     Dates: start: 20131108
  2. BEVACIZUMAB. [Suspect]
     Active Substance: BEVACIZUMAB
     Indication: BREAST CANCER
     Dosage: 5 MG/KG, UNK
     Route: 042
     Dates: start: 20131108
  3. OXALIPLATIN. [Suspect]
     Active Substance: OXALIPLATIN
     Indication: BREAST CANCER
     Dosage: 85 MG/M2, UNK
     Route: 042
     Dates: start: 20131108
  4. FLUOROURACIL. [Suspect]
     Active Substance: FLUOROURACIL
     Indication: BREAST CANCER
     Dosage: 2400 MG/M2, UNK
     Route: 042
     Dates: start: 20131108

REACTIONS (2)
  - Bacteraemia [Recovered/Resolved]
  - Pyrexia [Recovered/Resolved]

NARRATIVE: CASE EVENT DATE: 20131212
